FAERS Safety Report 8412680-4 (Version None)
Quarter: 2012Q2

REPORT INFORMATION
  Report Type: 
  Country: None (occurrence: None)
  Receive Date: 20120605
  Receipt Date: 20120523
  Transmission Date: 20120825
  Serious: Yes (Other)
  Sender: FDA-Public Use
  Company Number: US-FRI-1000030775

PATIENT
  Age: 50 Year
  Sex: Female

DRUGS (3)
  1. BYSTOLIC [Concomitant]
     Indication: HYPERTENSION
  2. SYNTHROID [Concomitant]
     Indication: HYPOTHYROIDISM
  3. LEXAPRO [Suspect]
     Indication: DEPRESSION
     Route: 048

REACTIONS (1)
  - CANDIDIASIS [None]
